FAERS Safety Report 14956462 (Version 2)
Quarter: 2018Q2

REPORT INFORMATION
  Report Type: Spontaneous
  Country: US (occurrence: US)
  Receive Date: 20180531
  Receipt Date: 20180612
  Transmission Date: 20180711
  Serious: No
  Sender: FDA-Public Use
  Company Number: US-PFIZER INC-2018220367

PATIENT
  Age: 62 Year
  Sex: Female
  Weight: 86.16 kg

DRUGS (2)
  1. IBRANCE [Suspect]
     Active Substance: PALBOCICLIB
     Indication: BREAST CANCER METASTATIC
     Dosage: 125MG CAPSULE ONCE A DAY BY MOUTH
     Route: 048
     Dates: start: 201704
  2. LETROZOLE. [Suspect]
     Active Substance: LETROZOLE
     Dosage: 2.5MG TABLET ONCE A DAY BY MOUTH
     Route: 048
     Dates: start: 201704

REACTIONS (3)
  - Skin hyperpigmentation [Not Recovered/Not Resolved]
  - White blood cell count decreased [Unknown]
  - Condition aggravated [Not Recovered/Not Resolved]

NARRATIVE: CASE EVENT DATE: 2017
